FAERS Safety Report 6970198-X (Version None)
Quarter: 2010Q3

REPORT INFORMATION
  Report Type: 
  Country: None (occurrence: None)
  Receive Date: 20100903
  Receipt Date: 20100820
  Transmission Date: 20110219
  Serious: Yes (Other)
  Sender: FDA-Public Use
  Company Number: AUR-APL-2010-02139

PATIENT
  Age: 48 Year
  Sex: Male

DRUGS (7)
  1. AMOXICILLIN [Suspect]
     Indication: FOLLICULITIS
     Dosage: 500MG, BID, ORAL
     Route: 048
     Dates: start: 20100710
  2. ATARAX [Suspect]
     Indication: FOLLICULITIS
     Dosage: 25MG, DAILY, ORAL
     Route: 048
     Dates: start: 20100710
  3. XYREM [Suspect]
     Indication: NARCOLEPSY
     Dosage: TWICE HS, ORAL
     Route: 048
     Dates: start: 20091201
  4. XYREM [Suspect]
     Indication: SLEEP APNOEA SYNDROME
     Dosage: TWICE HS, ORAL
     Route: 048
     Dates: start: 20091201
  5. LAMOTRIGINE [Concomitant]
  6. ESCITALOPRAM [Concomitant]
  7. ARIPIPRAZOLE [Concomitant]

REACTIONS (3)
  - CONDITION AGGRAVATED [None]
  - DEPRESSION [None]
  - FOLLICULITIS [None]
